FAERS Safety Report 20297516 (Version 1)
Quarter: 2022Q1

REPORT INFORMATION
  Report Type: Spontaneous
  Country: US (occurrence: US)
  Receive Date: 20220105
  Receipt Date: 20220105
  Transmission Date: 20220423
  Serious: Yes (Other)
  Sender: FDA-Public Use
  Company Number: US-GLENMARK PHARMACEUTICALS-2021GMK053106

PATIENT

DRUGS (1)
  1. ESTRADIOL [Suspect]
     Active Substance: ESTRADIOL
     Indication: Product used for unknown indication
     Dosage: UNK
     Route: 067

REACTIONS (5)
  - Vulvovaginal injury [Unknown]
  - Drug dose omission by device [Unknown]
  - Injury associated with device [Unknown]
  - Device material issue [Unknown]
  - Drug delivery system issue [Unknown]
